FAERS Safety Report 8924852 (Version 1)
Quarter: 2012Q4

REPORT INFORMATION
  Report Type: Report from Study
  Country: US (occurrence: US)
  Receive Date: 20121126
  Receipt Date: 20121126
  Transmission Date: 20130627
  Serious: Yes (Other)
  Sender: FDA-Public Use
  Company Number: US-ABBOTT-12P-163-0929345-00

PATIENT
  Sex: Female

DRUGS (9)
  1. HUMIRA 40 MG/0.8 ML PEN [Suspect]
     Indication: COLITIS ULCERATIVE
     Dates: start: 2008, end: 201112
  2. HUMIRA 40 MG/0.8 ML PEN [Suspect]
     Indication: SACROILIITIS
     Route: 058
     Dates: end: 201104
  3. HUMIRA 40 MG/0.8 ML PEN [Suspect]
     Route: 058
     Dates: start: 20120422
  4. WELLBUTRIN [Concomitant]
     Indication: ANTIDEPRESSANT THERAPY
  5. GLUCOPHAGE [Concomitant]
     Indication: DIABETES MELLITUS
  6. PROMETRIUM [Concomitant]
     Indication: HORMONE REPLACEMENT THERAPY
  7. VIVELLE-DOT [Concomitant]
     Indication: HORMONE REPLACEMENT THERAPY
  8. ZOCOR [Concomitant]
     Indication: BLOOD CHOLESTEROL INCREASED
  9. SYNTHROID [Concomitant]
     Indication: HYPOTHYROIDISM

REACTIONS (8)
  - Gastric banding [Unknown]
  - Sacroiliitis [Recovered/Resolved]
  - Off label use [Unknown]
  - Cough [Recovered/Resolved]
  - Back pain [Unknown]
  - Arthralgia [Unknown]
  - Pain in extremity [Unknown]
  - Sacroiliitis [Unknown]
